FAERS Safety Report 24250817 (Version 1)
Quarter: 2024Q3

REPORT INFORMATION
  Report Type: Spontaneous
  Country: US (occurrence: US)
  Receive Date: 20240826
  Receipt Date: 20240826
  Transmission Date: 20241016
  Serious: No
  Sender: MEDEXUS PHARMA
  Company Number: US-MEDEXUS PHARMA, INC.-2024MED00190

PATIENT
  Age: 62 Year
  Sex: Female

DRUGS (7)
  1. RASUVO [Suspect]
     Active Substance: METHOTREXATE SODIUM
     Indication: Rheumatoid arthritis
     Dosage: 20 MG, 1X/WEEK, WEDNESDAYS
     Route: 058
     Dates: start: 20240423
  2. PREDNISONE [Concomitant]
     Active Substance: PREDNISONE
  3. XELJANZ [Concomitant]
     Active Substance: TOFACITINIB CITRATE
  4. DIFLUPREDNATE [Concomitant]
     Active Substance: DIFLUPREDNATE
  5. COSOPT [Concomitant]
     Active Substance: DORZOLAMIDE HYDROCHLORIDE\TIMOLOL MALEATE
  6. ALPHAGAN P [Concomitant]
     Active Substance: BRIMONIDINE TARTRATE
  7. LOSARTAN [Concomitant]
     Active Substance: LOSARTAN\LOSARTAN POTASSIUM

REACTIONS (6)
  - Injection site haemorrhage [Recovered/Resolved]
  - Product dose omission issue [Recovered/Resolved]
  - Device defective [Recovered/Resolved]
  - Device breakage [Recovered/Resolved]
  - Device delivery system issue [Recovered/Resolved]
  - Device leakage [Recovered/Resolved]

NARRATIVE: CASE EVENT DATE: 20240423
